FAERS Safety Report 25036703 (Version 3)
Quarter: 2025Q3

REPORT INFORMATION
  Report Type: Report from Study
  Country: CA (occurrence: CA)
  Receive Date: 20250304
  Receipt Date: 20250827
  Transmission Date: 20251020
  Serious: Yes (Other)
  Sender: Haleon PLC
  Company Number: CA-002147023-NVSC2024CA093099

PATIENT
  Age: 68 Year
  Sex: Female

DRUGS (2)
  1. DICLOFENAC [Suspect]
     Active Substance: DICLOFENAC
     Indication: Product used for unknown indication
  2. DICLOFENAC [Suspect]
     Active Substance: DICLOFENAC
     Indication: Product used for unknown indication

REACTIONS (1)
  - Psoriatic arthropathy [Unknown]
